FAERS Safety Report 6520505-7 (Version None)
Quarter: 2009Q4

REPORT INFORMATION
  Report Type: 
  Country: None (occurrence: None)
  Receive Date: 20091229
  Receipt Date: 20091218
  Transmission Date: 20100525
  Serious: Yes (Hospitalization)
  Sender: FDA-Public Use
  Company Number: B0611868A

PATIENT
  Age: 1 Month
  Sex: Male
  Weight: 3.8 kg

DRUGS (1)
  1. ZOVIRAX [Suspect]
     Indication: VARICELLA
     Dosage: 75MG FOUR TIMES PER DAY
     Route: 048
     Dates: start: 20091201

REACTIONS (3)
  - CEREBRAL INFARCTION [None]
  - CONVULSION [None]
  - MOOD ALTERED [None]
